FAERS Safety Report 20317641 (Version 2)
Quarter: 2023Q2

REPORT INFORMATION
  Report Type: Other
  Country: US (occurrence: None)
  Receive Date: 20220110
  Receipt Date: 20230626
  Transmission Date: 20230722
  Serious: No
  Sender: FDA-Public Use
  Company Number: US-ROCHE-2995514

PATIENT
  Age: 57 Year
  Sex: Female
  Weight: 95.34 kg

DRUGS (9)
  1. OCREVUS [Suspect]
     Active Substance: OCRELIZUMAB
     Indication: Relapsing-remitting multiple sclerosis
     Dosage: DATE OF TREATMENT: 15/JUN/2023, 14/DEC/2022, 02/JUN/2022, 16/DEC/2021, 17/JUN/2021, 31/DEC/2020, 17/
     Route: 042
     Dates: start: 20201217
  2. OCREVUS [Suspect]
     Active Substance: OCRELIZUMAB
     Route: 042
     Dates: start: 20211216
  3. ACYCLOVIR [Concomitant]
     Active Substance: ACYCLOVIR
     Indication: Herpes ophthalmic
     Route: 048
     Dates: start: 2018
  4. PREDNISONE [Concomitant]
     Active Substance: PREDNISONE
     Dosage: 1 DROP IN LEFT EYE ONCE DAILY, 1 %
     Dates: start: 2018
  5. CYCLOPENTOLATE [Concomitant]
     Active Substance: CYCLOPENTOLATE
     Dosage: ONE DROP IN LEFT EYE ONCE DAILY, 1 %
     Dates: start: 2018
  6. GABAPENTIN [Concomitant]
     Active Substance: GABAPENTIN
     Indication: Hypoaesthesia
     Dosage: 600 MG, ONCE A DAY, AT NIGHT,
     Route: 048
     Dates: start: 2020
  7. GABAPENTIN [Concomitant]
     Active Substance: GABAPENTIN
     Indication: Pain in extremity
  8. LEVOTHYROXINE [Concomitant]
     Active Substance: LEVOTHYROXINE
     Dosage: 75 MG ORAL ONCE A DAY, MORNING
  9. BACLOFEN [Concomitant]
     Active Substance: BACLOFEN
     Indication: Muscle spasms
     Dosage: 10 MG ONCE A DAY ORAL AT NIGHT
     Dates: start: 2015

REACTIONS (1)
  - COVID-19 [Recovered/Resolved]

NARRATIVE: CASE EVENT DATE: 20211230
